FAERS Safety Report 7034375-4 (Version None)
Quarter: 2010Q4

REPORT INFORMATION
  Report Type: 
  Country: None (occurrence: None)
  Receive Date: 20101008
  Receipt Date: 20101005
  Transmission Date: 20110411
  Serious: Yes (Death, Hospitalization)
  Sender: FDA-Public Use
  Company Number: US-JNJFOC-20101001960

PATIENT
  Sex: Female
  Weight: 45.81 kg

DRUGS (1)
  1. DURAGESIC-100 [Suspect]
     Indication: PAIN
     Dosage: 1-2 PATCHES
     Route: 062

REACTIONS (1)
  - GENERAL PHYSICAL HEALTH DETERIORATION [None]
